FAERS Safety Report 16902554 (Version 2)
Quarter: 2019Q4

REPORT INFORMATION
  Report Type: Spontaneous
  Country: FR (occurrence: FR)
  Receive Date: 20191010
  Receipt Date: 20191211
  Transmission Date: 20200122
  Serious: Yes (Life-Threatening, Other)
  Sender: FDA-Public Use
  Company Number: FR-AUROBINDO-AUR-APL-2019-017976

PATIENT
  Age: 16 Year
  Sex: Female
  Weight: 44 kg

DRUGS (7)
  1. BUSULFAN. [Suspect]
     Active Substance: BUSULFAN
     Dosage: 70 MILLIGRAM, ONCE A DAY
     Route: 042
     Dates: start: 20190305, end: 20190305
  2. CYTARABINE. [Suspect]
     Active Substance: CYTARABINE
     Indication: BONE MARROW CONDITIONING REGIMEN
     Dosage: 2.82 GRAM, ONCE A DAY
     Route: 042
     Dates: start: 20190226
  3. AMSACRINE [Suspect]
     Active Substance: AMSACRINE
     Indication: BONE MARROW CONDITIONING REGIMEN
     Dosage: 141 MILLIGRAM, ONCE A DAY
     Route: 042
     Dates: start: 20190226
  4. FLUDARABINE [Suspect]
     Active Substance: FLUDARABINE PHOSPHATE
     Indication: BONE MARROW CONDITIONING REGIMEN
     Dosage: 42.5 MILLIGRAM, ONCE A DAY
     Route: 042
     Dates: start: 20190226
  5. BUSULFAN. [Suspect]
     Active Substance: BUSULFAN
     Indication: BONE MARROW CONDITIONING REGIMEN
     Dosage: 35 MILLIGRAM, ONCE A DAY
     Route: 042
     Dates: start: 20190305, end: 20190305
  6. ONDANSETRON [Suspect]
     Active Substance: ONDANSETRON
     Indication: PROPHYLAXIS OF NAUSEA AND VOMITING
     Dosage: 16 MILLIGRAM, ONCE A DAY
     Route: 042
     Dates: start: 20190225
  7. DEFITELIO [Suspect]
     Active Substance: DEFIBROTIDE SODIUM
     Indication: PROPHYLAXIS
     Dosage: 1096 MILLIGRAM, ONCE A DAY
     Route: 042
     Dates: start: 20190226, end: 20190305

REACTIONS (1)
  - Posterior reversible encephalopathy syndrome [Recovered/Resolved]

NARRATIVE: CASE EVENT DATE: 20190305
